FAERS Safety Report 12938460 (Version 1)
Quarter: 2016Q4

REPORT INFORMATION
  Report Type: Spontaneous
  Country: US (occurrence: US)
  Receive Date: 20161114
  Receipt Date: 20161114
  Transmission Date: 20170207
  Serious: Yes (Hospitalization, Other)
  Sender: FDA-Public Use
  Company Number: None

PATIENT
  Age: 69 Year
  Sex: Female
  Weight: 106.65 kg

DRUGS (3)
  1. TRULICITY [Suspect]
     Active Substance: DULAGLUTIDE
     Indication: OBESITY
     Dosage: ?          OTHER FREQUENCY:USE WEEKLY;?
     Route: 058
     Dates: start: 20161108
  2. TRULICITY [Suspect]
     Active Substance: DULAGLUTIDE
     Indication: DIABETES MELLITUS
     Dosage: ?          OTHER FREQUENCY:USE WEEKLY;?
     Route: 058
     Dates: start: 20161108
  3. TRULICITY [Suspect]
     Active Substance: DULAGLUTIDE
     Indication: PRODUCT USED FOR UNKNOWN INDICATION
     Dosage: ?          OTHER FREQUENCY:USE WEEKLY;?
     Route: 058
     Dates: start: 20161108

REACTIONS (3)
  - Amylase increased [None]
  - Blood pressure decreased [None]
  - Abdominal pain [None]

NARRATIVE: CASE EVENT DATE: 20161109
